FAERS Safety Report 9930174 (Version 1)
Quarter: 2014Q1

REPORT INFORMATION
  Report Type: Spontaneous
  Country: US (occurrence: US)
  Receive Date: 20140227
  Receipt Date: 20140227
  Transmission Date: 20141002
  Serious: No
  Sender: FDA-Public Use
  Company Number: US-AMGEN-USASP2013074765

PATIENT
  Age: 25 Year
  Sex: Female
  Weight: 72.56 kg

DRUGS (3)
  1. ENBREL [Suspect]
     Indication: PSORIATIC ARTHROPATHY
     Dosage: 50 MG, ONCE A WEEK
     Route: 058
  2. ENBREL [Suspect]
     Indication: PSORIASIS
  3. PREDNISONE [Concomitant]
     Dosage: 1 MG, UNK

REACTIONS (4)
  - Urinary tract infection [Recovered/Resolved]
  - Injection site reaction [Recovering/Resolving]
  - Injection site warmth [Recovering/Resolving]
  - Injection site erythema [Recovering/Resolving]
